FAERS Safety Report 8269875 (Version 4)
Quarter: 2012Q4

REPORT INFORMATION
  Report Type: Spontaneous
  Country: JP (occurrence: None)
  Receive Date: 20111125
  Receipt Date: 20121009
  Transmission Date: 20130627
  Serious: Yes (Hospitalization, Other)
  Sender: FDA-Public Use
  Company Number: ADR-2011-11587

PATIENT
  Age: 11 Year
  Sex: Male

DRUGS (7)
  1. GABALON INTRATHECAL [Suspect]
     Indication: SPASTICITY
     Route: 037
  2. WYPAX [Concomitant]
  3. LIPITOR [Concomitant]
  4. URSO [Concomitant]
  5. PANTOSIN [Concomitant]
  6. MAGLAX [Concomitant]
  7. SELBEX [Concomitant]

REACTIONS (5)
  - Pyrexia [None]
  - Muscle spasticity [None]
  - Drug tolerance [None]
  - Constipation [None]
  - Urinary retention [None]
